FAERS Safety Report 15003389 (Version 2)
Quarter: 2019Q1

REPORT INFORMATION
  Report Type: Report from Study
  Country: FR (occurrence: FR)
  Receive Date: 20180613
  Receipt Date: 20190101
  Transmission Date: 20190417
  Serious: Yes (Hospitalization)
  Sender: FDA-Public Use
  Company Number: FR-ACCORD-068114

PATIENT
  Age: 84 Year
  Sex: Female
  Weight: 43 kg

DRUGS (3)
  1. AVASTIN [Suspect]
     Active Substance: BEVACIZUMAB
     Indication: COLORECTAL CANCER METASTATIC
     Dosage: TOTAL 11 CYCLES WERE RECIEVED
     Route: 042
     Dates: start: 20170313
  2. ELVORINE [Suspect]
     Active Substance: LEUCOVORIN CALCIUM
     Indication: COLORECTAL CANCER METASTATIC
     Dates: start: 20170313
  3. FLUOROURACIL. [Suspect]
     Active Substance: FLUOROURACIL
     Indication: COLORECTAL CANCER METASTATIC
     Dosage: RECENT DOSE RECEIVED ON 11-SEP-2017 11 CYCLES
     Route: 041
     Dates: start: 20170313

REACTIONS (3)
  - Cognitive disorder [Unknown]
  - General physical health deterioration [Not Recovered/Not Resolved]
  - Pleural effusion [Recovered/Resolved]

NARRATIVE: CASE EVENT DATE: 20170911
